FAERS Safety Report 9628929 (Version 3)
Quarter: 2017Q1

REPORT INFORMATION
  Report Type: Spontaneous
  Country: CA (occurrence: CA)
  Receive Date: 20131017
  Receipt Date: 20170320
  Transmission Date: 20170429
  Serious: Yes (Death, Life-Threatening, Other)
  Sender: FDA-Public Use
  Company Number: CA-ABBVIE-13P-028-1039999-00

PATIENT
  Age: 68 Year
  Sex: Female

DRUGS (9)
  1. VITAMIN D [Concomitant]
     Active Substance: CHOLECALCIFEROL
     Indication: PRODUCT USED FOR UNKNOWN INDICATION
  2. METHOTREXATE. [Concomitant]
     Active Substance: METHOTREXATE
     Route: 058
     Dates: start: 2011, end: 2011
  3. CELECOXIB. [Concomitant]
     Active Substance: CELECOXIB
     Indication: TENDONITIS
  4. ZOLEDRONIC ACID [Concomitant]
     Active Substance: ZOLEDRONIC ACID
     Indication: PRODUCT USED FOR UNKNOWN INDICATION
  5. CALCIUM [Concomitant]
     Active Substance: CALCIUM
     Indication: PRODUCT USED FOR UNKNOWN INDICATION
  6. CELECOXIB. [Concomitant]
     Active Substance: CELECOXIB
     Indication: PERIPHERAL ARTHRITIS
  7. HUMIRA [Suspect]
     Active Substance: ADALIMUMAB
     Indication: AXIAL SPONDYLOARTHRITIS
     Route: 058
     Dates: start: 2011, end: 2011
  8. CELECOXIB. [Concomitant]
     Active Substance: CELECOXIB
     Indication: AXIAL SPONDYLOARTHRITIS
     Route: 048
  9. METHOTREXATE. [Concomitant]
     Active Substance: METHOTREXATE
     Indication: AXIAL SPONDYLOARTHRITIS
     Route: 058

REACTIONS (10)
  - Antiphospholipid syndrome [Fatal]
  - Gastrointestinal haemorrhage [Fatal]
  - Cardiolipin antibody positive [Fatal]
  - Diarrhoea [Unknown]
  - Septic shock [Unknown]
  - Nausea [Unknown]
  - Pyrexia [Unknown]
  - Peripheral ischaemia [Fatal]
  - Decreased appetite [Unknown]
  - Peripheral vascular disorder [Fatal]

NARRATIVE: CASE EVENT DATE: 2011
